FAERS Safety Report 8338981-6 (Version None)
Quarter: 2012Q2

REPORT INFORMATION
  Report Type: 
  Country: None (occurrence: None)
  Receive Date: 20120507
  Receipt Date: 20120412
  Transmission Date: 20120825
  Serious: No
  Sender: FDA-Public Use
  Company Number: US-BAYER-2012-040849

PATIENT
  Age: 52 Year
  Sex: Male

DRUGS (1)
  1. LEUKINE [Suspect]
     Indication: MALIGNANT MELANOMA
     Dosage: 14 DAY ON AND 14 DAY
     Dates: start: 20120325

REACTIONS (1)
  - RASH [None]
